FAERS Safety Report 7078349-6 (Version None)
Quarter: 2010Q4

REPORT INFORMATION
  Report Type: 
  Country: None (occurrence: None)
  Receive Date: 20101102
  Receipt Date: 20101025
  Transmission Date: 20110411
  Serious: Yes (Other)
  Sender: FDA-Public Use
  Company Number: US-BAYER-201038408NA

PATIENT

DRUGS (1)
  1. BETASERON [Suspect]
     Route: 065

REACTIONS (2)
  - INTENTIONAL SELF-INJURY [None]
  - VOMITING [None]
